FAERS Safety Report 8289545-4 (Version None)
Quarter: 2012Q2

REPORT INFORMATION
  Report Type: 
  Country: None (occurrence: None)
  Receive Date: 20120417
  Receipt Date: 20120410
  Transmission Date: 20120825
  Serious: Yes (Death, Life-Threatening, Hospitalization)
  Sender: FDA-Public Use
  Company Number: US-BRISTOL-MYERS SQUIBB COMPANY-16106726

PATIENT
  Age: 79 Year
  Sex: Female
  Weight: 64 kg

DRUGS (13)
  1. FAMOTIDINE [Concomitant]
     Dates: start: 20110614
  2. FOLIC ACID [Concomitant]
     Indication: SUPPLEMENTATION THERAPY
     Dates: start: 20110621
  3. PEMETREXED DISODIUM [Suspect]
     Indication: NON-SMALL CELL LUNG CANCER
     Dosage: LAST DOSE:12SEP2011
     Route: 042
     Dates: start: 20110801, end: 20110919
  4. ALOXI [Concomitant]
     Dates: start: 20110801
  5. BEVACIZUMAB [Suspect]
     Indication: NON-SMALL CELL LUNG CANCER
     Dosage: LAST DOSE:12SEP2011
     Route: 042
     Dates: start: 20110801, end: 20110919
  6. ZOLPIDEM [Concomitant]
  7. NORVASC [Concomitant]
     Dates: start: 20071221
  8. HYZAAR [Concomitant]
     Dates: start: 20071221
  9. VITAMIN B-12 [Concomitant]
     Indication: SUPPLEMENTATION THERAPY
     Dates: start: 20110721
  10. CARBOPLATIN [Suspect]
     Indication: NON-SMALL CELL LUNG CANCER
     Dosage: 1DF=6AUC LAST DOSE:12SEP2011
     Route: 042
     Dates: start: 20110801, end: 20110919
  11. ACETYLSALICYLIC ACID SRT [Concomitant]
     Dates: start: 20080121
  12. EMEND [Concomitant]
     Dates: start: 20110801
  13. XANAX [Concomitant]

REACTIONS (5)
  - NEOPLASM MALIGNANT [None]
  - HYPOKALAEMIA [None]
  - HYPOPHOSPHATAEMIA [None]
  - TRACHEO-OESOPHAGEAL FISTULA [None]
  - PNEUMONIA ASPIRATION [None]
